FAERS Safety Report 16360172 (Version 2)
Quarter: 2020Q1

REPORT INFORMATION
  Report Type: Report from Study
  Country: US (occurrence: US)
  Receive Date: 20190528
  Receipt Date: 20200106
  Transmission Date: 20200409
  Serious: Yes (Other)
  Sender: FDA-Public Use
  Company Number: US-ROCHE-2320505

PATIENT
  Sex: Female

DRUGS (1)
  1. OCREVUS [Suspect]
     Active Substance: OCRELIZUMAB
     Indication: PRIMARY PROGRESSIVE MULTIPLE SCLEROSIS
     Route: 065
     Dates: start: 20171205

REACTIONS (5)
  - Cellulitis [Not Recovered/Not Resolved]
  - Joint injury [Unknown]
  - Impaired healing [Unknown]
  - Skin abrasion [Unknown]
  - Fall [Unknown]
